FAERS Safety Report 4878681-8 (Version None)
Quarter: 2006Q1

REPORT INFORMATION
  Report Type: 
  Country: None (occurrence: None)
  Receive Date: 20060112
  Receipt Date: 20051230
  Transmission Date: 20060701
  Serious: Yes (Other)
  Sender: FDA-Public Use
  Company Number: CH-AVENTIS-200610146EU

PATIENT
  Age: 29 Year
  Sex: Female

DRUGS (12)
  1. LASIX [Suspect]
     Indication: SECONDARY HYPERTENSION
     Route: 048
  2. SORTIS [Suspect]
     Indication: METABOLIC DISORDER
     Route: 048
  3. APROVEL [Suspect]
     Indication: SECONDARY HYPERTENSION
     Route: 048
  4. MIGRALEVE [Suspect]
     Indication: MIGRAINE
     Route: 048
  5. ANTI-PARATHYROID HORMONES [Concomitant]
     Indication: RENAL TUBULAR DISORDER
     Route: 048
  6. NEXIUM [Concomitant]
     Indication: GASTROINTESTINAL DISORDER
     Route: 048
  7. BELOC [Concomitant]
     Indication: SECONDARY HYPERTENSION
     Route: 048
  8. ASPIRIN [Concomitant]
     Indication: PROPHYLAXIS
     Route: 048
  9. ROCALTROL [Concomitant]
     Indication: RENAL TUBULAR DISORDER
     Route: 048
  10. RENAGEL [Concomitant]
     Indication: RENAL TUBULAR DISORDER
     Route: 048
  11. FOLIC ACID W/VITAMINS [Concomitant]
     Indication: RENAL TUBULAR DISORDER
     Route: 048
  12. CALCIUM ACETATE [Concomitant]
     Indication: RENAL TUBULAR DISORDER
     Route: 048

REACTIONS (2)
  - ABORTION INDUCED [None]
  - DRUG EXPOSURE DURING PREGNANCY [None]
